FAERS Safety Report 5264123-X (Version None)
Quarter: 2007Q1

REPORT INFORMATION
  Report Type: 
  Country: None (occurrence: None)
  Receive Date: 20070313
  Receipt Date: 20070227
  Transmission Date: 20070707
  Serious: Yes (Hospitalization)
  Sender: FDA-Public Use
  Company Number: IT-PFIZER INC-2007017093

PATIENT
  Sex: Female

DRUGS (3)
  1. ZYRTEC [Suspect]
     Indication: ALLERGY PROPHYLAXIS
     Dosage: DAILY DOSE:10MG
     Route: 048
     Dates: start: 20070224, end: 20070224
  2. CLARITHROMYCIN [Suspect]
     Indication: SALPINGITIS
     Dosage: DAILY DOSE:1000MG
     Route: 048
     Dates: start: 20070224, end: 20070225
  3. BROMELAINS [Concomitant]
     Route: 048
     Dates: start: 20070224, end: 20070225

REACTIONS (2)
  - ELECTROCARDIOGRAM QT PROLONGED [None]
  - VENTRICULAR TACHYCARDIA [None]
